FAERS Safety Report 9869640 (Version 1)
Quarter: 2014Q1

REPORT INFORMATION
  Report Type: Spontaneous
  Country: IL (occurrence: None)
  Receive Date: 20140131
  Receipt Date: 20140131
  Transmission Date: 20141002
  Serious: Yes (Death, Hospitalization)
  Sender: FDA-Public Use
  Company Number: UTC-043710

PATIENT
  Age: 60 Year
  Sex: Male

DRUGS (1)
  1. REMODULIN [Suspect]
     Indication: PULMONARY ARTERIAL HYPERTENSION
     Dosage: 43.2 UG/KG (0.03 UG/KG, 1 IN 1 MIN) SUBCUTANEOUS
     Route: 058

REACTIONS (1)
  - General physical health deterioration [None]
